FAERS Safety Report 14937622 (Version 12)
Quarter: 2022Q2

REPORT INFORMATION
  Report Type: Spontaneous
  Country: GR (occurrence: GR)
  Receive Date: 20180525
  Receipt Date: 20220426
  Transmission Date: 20220721
  Serious: Yes (Death, Life-Threatening, Other)
  Sender: FDA-Public Use
  Company Number: PHHY2018GR006241

PATIENT
  Age: 25 Year
  Sex: Male

DRUGS (16)
  1. QUETIAPINE [Interacting]
     Active Substance: QUETIAPINE
     Indication: Depression
     Dosage: UNK
     Route: 048
  2. QUETIAPINE [Interacting]
     Active Substance: QUETIAPINE
     Indication: Overdose
  3. FLUOXETINE [Interacting]
     Active Substance: FLUOXETINE HYDROCHLORIDE
     Indication: Depression
     Dosage: UNK
     Route: 065
  4. FLUOXETINE [Interacting]
     Active Substance: FLUOXETINE HYDROCHLORIDE
     Indication: Overdose
  5. VALPROATE [Interacting]
     Active Substance: VALPROIC ACID
     Indication: Depression
     Dosage: UNK
     Route: 048
  6. CITALOPRAM [Interacting]
     Active Substance: CITALOPRAM HYDROBROMIDE
     Indication: Depression
     Dosage: UNK
     Route: 065
  7. CITALOPRAM [Interacting]
     Active Substance: CITALOPRAM HYDROBROMIDE
     Indication: Overdose
  8. DESLORATADINE [Interacting]
     Active Substance: DESLORATADINE
     Indication: Depression
     Dosage: UNK
     Route: 065
  9. DESLORATADINE [Interacting]
     Active Substance: DESLORATADINE
     Indication: Overdose
  10. FLURBIPROFEN [Interacting]
     Active Substance: FLURBIPROFEN
     Indication: Overdose
     Dosage: UNK
     Route: 065
  11. MOCLOBEMIDE [Interacting]
     Active Substance: MOCLOBEMIDE
     Indication: Depression
     Dosage: UNK
     Route: 065
  12. MOCLOBEMIDE [Interacting]
     Active Substance: MOCLOBEMIDE
     Indication: Overdose
  13. PROPRANOLOL [Interacting]
     Active Substance: PROPRANOLOL HYDROCHLORIDE
     Indication: Overdose
     Dosage: UNK
     Route: 065
  14. PERINDOPRIL [Interacting]
     Active Substance: PERINDOPRIL
     Indication: Overdose
     Dosage: UNK
     Route: 065
  15. ALPRAZOLAM [Interacting]
     Active Substance: ALPRAZOLAM
     Indication: Depression
     Dosage: UNK
     Route: 048
  16. ALPRAZOLAM [Interacting]
     Active Substance: ALPRAZOLAM
     Indication: Overdose

REACTIONS (11)
  - Arrhythmia [Fatal]
  - Electrocardiogram QT prolonged [Fatal]
  - Toxicity to various agents [Fatal]
  - Sudden death [Fatal]
  - Ischaemic cerebral infarction [Fatal]
  - Hypertrophic cardiomyopathy [Fatal]
  - Drug interaction [Fatal]
  - Intentional overdose [Fatal]
  - Contraindicated product administered [Fatal]
  - Product use issue [Unknown]
  - Off label use [Unknown]
